FAERS Safety Report 20946884 (Version 2)
Quarter: 2024Q2

REPORT INFORMATION
  Report Type: Other
  Country: US (occurrence: None)
  Receive Date: 20220610
  Receipt Date: 20240531
  Transmission Date: 20240716
  Serious: Yes (Hospitalization, Other)
  Sender: FDA-Public Use
  Company Number: US-ROCHE-2389476

PATIENT
  Sex: Female
  Weight: 79.904 kg

DRUGS (11)
  1. ACTEMRA [Suspect]
     Active Substance: TOCILIZUMAB
     Indication: Giant cell arteritis
     Dosage: ONGOING: YES ; ONCE A WEEK
     Route: 058
     Dates: start: 201810
  2. BACTRIM [Concomitant]
     Active Substance: SULFAMETHOXAZOLE\TRIMETHOPRIM
     Indication: Antibiotic therapy
     Dosage: 11 DAY COURSE OF TREATMENT ;ONGOING: NO
     Route: 048
     Dates: start: 20190808
  3. APIXABAN [Concomitant]
     Active Substance: APIXABAN
     Indication: Cerebrovascular accident
     Route: 048
     Dates: start: 201808
  4. ASPIRIN [Concomitant]
     Active Substance: ASPIRIN
     Indication: Retinal haemorrhage
     Route: 048
     Dates: start: 2018
  5. CARVIDOL [Concomitant]
     Indication: Hypertension
     Dosage: ONGOING: YES
     Route: 048
     Dates: start: 2018
  6. FUROSEMIDE [Concomitant]
     Active Substance: FUROSEMIDE
     Indication: Atrial fibrillation
     Dosage: ONGOING: YES
     Route: 048
     Dates: start: 2015
  7. LEVOTHYROXINE [Concomitant]
     Active Substance: LEVOTHYROXINE\LEVOTHYROXINE SODIUM
     Indication: Hypothyroidism
     Route: 048
     Dates: start: 2018
  8. PREDNISONE [Concomitant]
     Active Substance: PREDNISONE
     Indication: Giant cell arteritis
     Route: 048
     Dates: start: 2018
  9. RANITIDINE [Concomitant]
     Active Substance: RANITIDINE
     Route: 048
     Dates: start: 2018
  10. MINERALS\VITAMINS [Concomitant]
     Active Substance: MINERALS\VITAMINS
     Indication: Cataract
  11. METFORMIN [Concomitant]
     Active Substance: METFORMIN HYDROCHLORIDE

REACTIONS (12)
  - Urinary tract infection [Recovered/Resolved]
  - Kidney infection [Recovered/Resolved]
  - Haematological infection [Recovered/Resolved]
  - Pyrexia [Recovered/Resolved]
  - Delirium [Recovered/Resolved]
  - Decreased appetite [Unknown]
  - Hypoacusis [Unknown]
  - Nausea [Unknown]
  - Back pain [Unknown]
  - Neoplasm [Unknown]
  - Skin discolouration [Unknown]
  - Impaired healing [Unknown]

NARRATIVE: CASE EVENT DATE: 20190803
